FAERS Safety Report 10007972 (Version 2)
Quarter: 2014Q2

REPORT INFORMATION
  Report Type: Spontaneous
  Country: SG (occurrence: AU)
  Receive Date: 20140313
  Receipt Date: 20140410
  Transmission Date: 20141212
  Serious: Yes (Death, Other)
  Sender: FDA-Public Use
  Company Number: PHHY2014AU026742

PATIENT
  Age: 74 Year
  Sex: Female

DRUGS (4)
  1. BACLOFEN INTRATHECAL [Suspect]
     Indication: STIFF PERSON SYNDROME
     Route: 037
  2. METHOTREXATE [Suspect]
     Indication: INVASIVE DUCTAL BREAST CARCINOMA
  3. 5-FLUOROURACIL [Suspect]
     Indication: INVASIVE DUCTAL BREAST CARCINOMA
  4. CYCLOPHOSPHAMIDE [Suspect]
     Indication: INVASIVE DUCTAL BREAST CARCINOMA

REACTIONS (7)
  - Respiratory failure [Fatal]
  - Stridor [Fatal]
  - Cardiovascular disorder [Unknown]
  - Respiratory disorder [Unknown]
  - General physical health deterioration [Unknown]
  - Chest discomfort [Unknown]
  - Drug ineffective [Unknown]
